FAERS Safety Report 5943709-0 (Version None)
Quarter: 2008Q4

REPORT INFORMATION
  Report Type: 
  Country: None (occurrence: None)
  Receive Date: 20081106
  Receipt Date: 20081029
  Transmission Date: 20090506
  Serious: Yes (Other)
  Sender: FDA-Public Use
  Company Number: US-WYE-H06623708

PATIENT
  Age: 51 Year
  Sex: Female
  Weight: 85.81 kg

DRUGS (9)
  1. PRISTIQ [Suspect]
     Indication: DEPRESSION
     Route: 048
     Dates: start: 20080701, end: 20081024
  2. PRISTIQ [Suspect]
     Route: 048
     Dates: start: 20081025, end: 20081001
  3. PROPRANOLOL [Concomitant]
     Indication: GASTROINTESTINAL DISORDER
     Dosage: UNKNOWN
     Dates: start: 20060101
  4. VOLTAREN [Concomitant]
     Indication: SPINAL COLUMN STENOSIS
     Dosage: 75 MG, FREQUENCY NOT SPECIFIED
  5. FOLIC ACID [Concomitant]
     Dosage: UNKNOWN
  6. VICOPROFEN [Concomitant]
     Indication: SPINAL COLUMN STENOSIS
     Dosage: UNKNOWN
  7. AMBIEN [Concomitant]
     Indication: INSOMNIA
     Dosage: UNKNOWN
  8. XANAX [Concomitant]
     Indication: ANXIETY
     Dosage: UNKNOWN
  9. NEXIUM [Concomitant]
     Indication: DYSPEPSIA
     Dosage: UNKNOWN

REACTIONS (2)
  - FATIGUE [None]
  - WEIGHT INCREASED [None]
